FAERS Safety Report 10947623 (Version 2)
Quarter: 2015Q2

REPORT INFORMATION
  Report Type: Report from Study
  Country: US (occurrence: US)
  Receive Date: 20150323
  Receipt Date: 20150603
  Transmission Date: 20150821
  Serious: Yes (Death, Hospitalization)
  Sender: FDA-Public Use
  Company Number: US-BRISTOL-MYERS SQUIBB COMPANY-BMS-2015-004890

PATIENT
  Age: 83 Year
  Sex: Female
  Weight: 74 kg

DRUGS (2)
  1. IPILIMUMAB [Suspect]
     Active Substance: IPILIMUMAB
     Indication: MALIGNANT MELANOMA
     Dosage: 3 MG/KG
     Route: 042
     Dates: start: 20141210, end: 20141210
  2. PREDNISONE. [Concomitant]
     Active Substance: PREDNISONE
     Indication: COLITIS
     Dosage: 80 MG, QD
     Route: 065
     Dates: start: 20150105

REACTIONS (3)
  - Lipase increased [Recovering/Resolving]
  - Acute kidney injury [Fatal]
  - Colitis [Recovering/Resolving]

NARRATIVE: CASE EVENT DATE: 20150116
